FAERS Safety Report 22516449 (Version 1)
Quarter: 2023Q2

REPORT INFORMATION
  Report Type: Spontaneous
  Country: US (occurrence: None)
  Receive Date: 20230603
  Receipt Date: 20230603
  Transmission Date: 20230721
  Serious: No
  Sender: FDA-Public Use
  Company Number: 2023A125929

PATIENT

DRUGS (2)
  1. BREZTRI [Suspect]
     Active Substance: BUDESONIDE\FORMOTEROL\GLYCOPYRROLATE
     Route: 055
  2. BEVESPI AEROSPHERE [Suspect]
     Active Substance: FORMOTEROL FUMARATE\GLYCOPYRROLATE
     Route: 055

REACTIONS (8)
  - Muscle spasms [Unknown]
  - Dyspnoea [Unknown]
  - Dysphonia [Unknown]
  - Headache [Unknown]
  - Productive cough [Unknown]
  - Depression [Unknown]
  - Anxiety [Unknown]
  - Product temperature excursion issue [Unknown]
